FAERS Safety Report 7327150-4 (Version None)
Quarter: 2011Q1

REPORT INFORMATION
  Report Type: 
  Country: None (occurrence: None)
  Receive Date: 20110302
  Receipt Date: 20110217
  Transmission Date: 20110831
  Serious: Yes (Hospitalization, Other)
  Sender: FDA-Public Use
  Company Number: JP-CELGENEUS-087-50794-10121621

PATIENT
  Sex: Female

DRUGS (10)
  1. VIDAZA [Suspect]
     Dosage: 75 MILLIGRAM/SQ. METER
     Route: 058
     Dates: start: 20110104, end: 20110110
  2. CATALIN [Concomitant]
     Indication: CATARACT
     Dates: start: 20080924
  3. EXJADE [Concomitant]
     Indication: IRON OVERLOAD
     Dosage: 250 MILLIGRAM
     Route: 048
     Dates: start: 20100131
  4. VIDAZA [Suspect]
     Indication: MYELODYSPLASTIC SYNDROME
     Dosage: 75 MILLIGRAM/SQ. METER
     Route: 058
     Dates: start: 20101110, end: 20101116
  5. MAGMITT [Concomitant]
     Indication: CONSTIPATION
     Dosage: PROPER QUANTITY
     Route: 048
     Dates: start: 20110105
  6. LENDORMIN [Concomitant]
     Dosage: .125 MILLIGRAM
     Route: 048
     Dates: start: 20080725
  7. RED BLOOD CELLS [Concomitant]
     Dosage: 2-4 UNITS
     Route: 051
     Dates: start: 20100101
  8. KYTRIL [Concomitant]
     Dosage: 1 MILLIGRAM
     Route: 048
     Dates: start: 20110202
  9. VIDAZA [Suspect]
     Dosage: 75 MILLIGRAM/SQ. METER
     Route: 058
     Dates: start: 20110202, end: 20110208
  10. LASIX [Concomitant]
     Indication: CARDIAC FAILURE
     Dosage: 20 MILLIGRAM
     Route: 048
     Dates: start: 20101218

REACTIONS (3)
  - DEMENTIA [None]
  - PNEUMONIA [None]
  - CARDIAC FAILURE [None]
